FAERS Safety Report 6745430-8 (Version None)
Quarter: 2010Q2

REPORT INFORMATION
  Report Type: 
  Country: None (occurrence: None)
  Receive Date: 20100528
  Receipt Date: 20100505
  Transmission Date: 20101027
  Serious: Yes (Other)
  Sender: FDA-Public Use
  Company Number: US-BAYER-201023134NA

PATIENT
  Age: 18 Year
  Sex: Female
  Weight: 59 kg

DRUGS (8)
  1. YAZ [Suspect]
     Indication: CONTRACEPTION
     Route: 048
     Dates: start: 20070101, end: 20091001
  2. IBUPROFEN [Concomitant]
  3. SUMATRIPTAN SUCCINATE [Concomitant]
     Dates: start: 20090619
  4. DICYCLOMINE [Concomitant]
     Dates: start: 20090610
  5. PROZAC [Concomitant]
     Dates: start: 20081001, end: 20091101
  6. LEXAPRO [Concomitant]
     Dates: start: 20081001, end: 20091101
  7. LORAZEPAM [Concomitant]
     Dosage: STARTED ON SUMMER 2008
     Dates: start: 20080101, end: 20100101
  8. PRILOSEC [Concomitant]

REACTIONS (5)
  - ABDOMINAL PAIN UPPER [None]
  - CHOLELITHIASIS [None]
  - INFECTION [None]
  - NAUSEA [None]
  - VOMITING [None]
